FAERS Safety Report 7015318-6 (Version None)
Quarter: 2010Q3

REPORT INFORMATION
  Report Type: 
  Country: None (occurrence: None)
  Receive Date: 20100922
  Receipt Date: 20100907
  Transmission Date: 20110219
  Serious: Yes (Other)
  Sender: FDA-Public Use
  Company Number: ACO_02143_2010

PATIENT
  Sex: Female
  Weight: 58.514 kg

DRUGS (11)
  1. AMPYRA [Suspect]
     Indication: GAIT DISTURBANCE
     Dosage: (10 MG BID)
     Dates: start: 20100615, end: 20100701
  2. AMPYRA [Suspect]
     Indication: GAIT DISTURBANCE
     Dosage: (10 MG BID)
     Dates: start: 20100701, end: 20100701
  3. AMPYRA [Suspect]
     Indication: GAIT DISTURBANCE
     Dosage: (10 MG BID)
     Dates: start: 20100701, end: 20100903
  4. REBIF [Concomitant]
  5. TOPRAL /00586501/ [Concomitant]
  6. OMEPRAZOLE [Concomitant]
  7. DITROPAN [Concomitant]
  8. ASPIRIN [Concomitant]
  9. B12-VITAMIN [Concomitant]
  10. VITAMIN D3 [Concomitant]
  11. MAGNESIUM [Concomitant]

REACTIONS (4)
  - CHEST DISCOMFORT [None]
  - DRUG INEFFECTIVE [None]
  - MUSCULOSKELETAL PAIN [None]
  - PAIN IN EXTREMITY [None]
